FAERS Safety Report 6991799-9 (Version None)
Quarter: 2010Q3

REPORT INFORMATION
  Report Type: 
  Country: None (occurrence: None)
  Receive Date: 20100917
  Receipt Date: 20100906
  Transmission Date: 20110219
  Serious: Yes (Hospitalization)
  Sender: FDA-Public Use
  Company Number: US-PFIZER INC-2010072099

PATIENT
  Age: 40 Year
  Sex: Female
  Weight: 61.224 kg

DRUGS (3)
  1. CHANTIX [Suspect]
     Indication: SMOKING CESSATION THERAPY
     Dosage: 0.5 MG, 1X/DAY
     Dates: start: 20090327
  2. CHANTIX [Suspect]
     Dosage: 0.5 MG, 2X/DAY
     Dates: start: 20090101, end: 20090101
  3. CHANTIX [Suspect]
     Dosage: 1.0 MG, 2X/DAY
     Dates: start: 20090101, end: 20090507

REACTIONS (3)
  - AGGRESSION [None]
  - MOOD SWINGS [None]
  - SUICIDAL IDEATION [None]
